FAERS Safety Report 17773916 (Version 2)
Quarter: 2020Q2

REPORT INFORMATION
  Report Type: Spontaneous
  Country: US (occurrence: US)
  Receive Date: 20200513
  Receipt Date: 20200520
  Transmission Date: 20200714
  Serious: Yes (Other)
  Sender: FDA-Public Use
  Company Number: US-APOTEX-2020AP010166

PATIENT
  Sex: Female

DRUGS (2)
  1. DILT-XR [Suspect]
     Active Substance: DILTIAZEM
     Indication: HYPERTENSION
     Dosage: 1 DF, QD
     Route: 065
  2. ELIQUIS [Concomitant]
     Active Substance: APIXABAN
     Indication: ATRIAL FIBRILLATION
     Dosage: 2.5 MG, BID
     Route: 065

REACTIONS (15)
  - Insomnia [Not Recovered/Not Resolved]
  - Haemorrhoids [Unknown]
  - Cardiac failure [Unknown]
  - Pain in extremity [Not Recovered/Not Resolved]
  - Arthralgia [Not Recovered/Not Resolved]
  - Joint swelling [Not Recovered/Not Resolved]
  - Peripheral swelling [Not Recovered/Not Resolved]
  - Burning sensation [Not Recovered/Not Resolved]
  - Cough [Unknown]
  - Malaise [Not Recovered/Not Resolved]
  - Groin pain [Not Recovered/Not Resolved]
  - Nausea [Unknown]
  - Abnormal weight gain [Unknown]
  - Headache [Unknown]
  - Abnormal dreams [Unknown]
